FAERS Safety Report 15297529 (Version 2)
Quarter: 2018Q3

REPORT INFORMATION
  Report Type: Spontaneous
  Country: BE (occurrence: BE)
  Receive Date: 20180820
  Receipt Date: 20180823
  Transmission Date: 20181010
  Serious: Yes (Other)
  Sender: FDA-Public Use
  Company Number: BE-PFIZER INC-2018332541

PATIENT
  Age: 33 Year
  Sex: Male

DRUGS (9)
  1. BLEOMYCIN [Concomitant]
     Active Substance: BLEOMYCIN SULFATE
     Dosage: UNK (MAINTENANCE TREATMENT)
  2. LAMIVUDINE. [Concomitant]
     Active Substance: LAMIVUDINE
     Indication: HIV INFECTION
     Dosage: UNK (TRIPLE THERAPY)
     Dates: start: 199805
  3. ADRIAMYCIN [Concomitant]
     Active Substance: DOXORUBICIN HYDROCHLORIDE
     Indication: HIV INFECTION
     Dosage: UNK, CYCLIC (SIX COURSES EVERY 2 WEEKS)
  4. VINCRISTINE SULPHATE [Concomitant]
     Active Substance: VINCRISTINE SULFATE
     Indication: HIV INFECTION
     Dosage: UNK, CYCLIC (SIX COURSES EVERY 2 WEEKS)
  5. INDINAVIR [Concomitant]
     Active Substance: INDINAVIR
     Indication: HIV INFECTION
     Dosage: UNK (TRIPLE THERAPY)
     Dates: start: 199805
  6. PACLITAXEL. [Suspect]
     Active Substance: PACLITAXEL
     Indication: PRIMARY EFFUSION LYMPHOMA
     Dosage: 60 MG, UNK
     Dates: start: 19990120
  7. PACLITAXEL. [Suspect]
     Active Substance: PACLITAXEL
     Indication: PLEURAL EFFUSION
     Dosage: 75 MG/M2, UNK (INFUSION)
     Dates: start: 19990202
  8. BLEOMYCIN [Concomitant]
     Active Substance: BLEOMYCIN SULFATE
     Indication: HIV INFECTION
     Dosage: UNK, CYCLIC (SIX COURSES EVERY 2 WEEKS)
  9. STAVUDINE. [Concomitant]
     Active Substance: STAVUDINE
     Indication: HIV INFECTION
     Dosage: UNK (TRIPLE THERAPY)
     Dates: start: 199805

REACTIONS (1)
  - Pulmonary hypertension [Recovered/Resolved]
